FAERS Safety Report 9170439 (Version 1)
Quarter: 2013Q1

REPORT INFORMATION
  Report Type: Spontaneous
  Country: ES (occurrence: ES)
  Receive Date: 20130319
  Receipt Date: 20130319
  Transmission Date: 20140127
  Serious: Yes (Life-Threatening, Other)
  Sender: FDA-Public Use
  Company Number: ES-ROXANE LABORATORIES, INC.-2013-RO-00379RO

PATIENT
  Age: 43 Year
  Sex: Male

DRUGS (2)
  1. PREDNISONE [Suspect]
     Indication: LEPROMATOUS LEPROSY
     Dosage: 30 MG
  2. THALIDOMIDE [Suspect]
     Indication: LEPROMATOUS LEPROSY

REACTIONS (3)
  - Deep vein thrombosis [Recovered/Resolved]
  - Type 2 lepra reaction [Unknown]
  - Antiphospholipid antibodies [Unknown]
